FAERS Safety Report 4658649-7 (Version None)
Quarter: 2005Q2

REPORT INFORMATION
  Report Type: 
  Country: None (occurrence: None)
  Receive Date: 20050510
  Receipt Date: 20050510
  Transmission Date: 20051028
  Serious: Yes (Hospitalization)
  Sender: FDA-Public Use
  Company Number: None

PATIENT
  Age: 52 Year
  Sex: Male
  Weight: 117.028 kg

DRUGS (15)
  1. HEPARIN [Suspect]
     Indication: CATHETERISATION CARDIAC
     Dosage: 5000UNITS   BID  SUBCUTANEO
     Route: 058
     Dates: start: 20050218, end: 20050220
  2. GLYBURIDE [Concomitant]
  3. LASIX [Concomitant]
  4. ATENOLOL [Concomitant]
  5. TYLENOL W/ CODEINE NO. 3 [Concomitant]
  6. ENALAPRIL MALEATE [Concomitant]
  7. ISOSORBIDE MONONITRATE [Concomitant]
  8. SIMVASTATIN [Concomitant]
  9. CITALOPRAM [Concomitant]
  10. DIVALPROEX SODIUM [Concomitant]
  11. QUETIAPINE FUMARATE [Concomitant]
  12. DORZOLAMIDE [Concomitant]
  13. BRIMONIDINE TARTRATE [Concomitant]
  14. TERAZOSIN [Concomitant]
  15. TOLTERODINE [Concomitant]

REACTIONS (2)
  - ANTIBODY TEST POSITIVE [None]
  - THROMBOCYTOPENIA [None]
